FAERS Safety Report 8108941-9 (Version None)
Quarter: 2012Q1

REPORT INFORMATION
  Report Type: 
  Country: None (occurrence: None)
  Receive Date: 20120202
  Receipt Date: 20120123
  Transmission Date: 20120608
  Serious: Yes (Hospitalization, Disabling)
  Sender: FDA-Public Use
  Company Number: DE-GLAXOSMITHKLINE-D0073273A

PATIENT
  Sex: Female
  Weight: 63 kg

DRUGS (4)
  1. FERROUS SULFATE TAB [Concomitant]
     Dosage: 100MG PER DAY
     Route: 048
  2. MARCUMAR [Concomitant]
     Indication: DEEP VEIN THROMBOSIS
     Route: 048
     Dates: start: 20010101
  3. PROMACTA [Suspect]
     Indication: AUTOIMMUNE THROMBOCYTOPENIA
     Dosage: 25MG PER DAY
     Route: 048
     Dates: start: 20111001, end: 20111024
  4. METOPROLOL SUCCINATE [Concomitant]
     Dosage: 47.5MG PER DAY
     Route: 048

REACTIONS (15)
  - VOMITING [None]
  - WEIGHT DECREASED [None]
  - ABDOMINAL PAIN UPPER [None]
  - FAECES DISCOLOURED [None]
  - HEADACHE [None]
  - HYPERTENSION [None]
  - CHROMATURIA [None]
  - EOSINOPHILIA [None]
  - CLOSTRIDIUM DIFFICILE COLITIS [None]
  - GASTRIC MUCOSA ERYTHEMA [None]
  - MEGAKARYOCYTES INCREASED [None]
  - RENAL FAILURE ACUTE [None]
  - NAUSEA [None]
  - DEPENDENCE ON ENABLING MACHINE OR DEVICE [None]
  - GASTROENTERITIS [None]
